FAERS Safety Report 8013161-2 (Version None)
Quarter: 2011Q4

REPORT INFORMATION
  Report Type: 
  Country: None (occurrence: None)
  Receive Date: 20111229
  Receipt Date: 20111227
  Transmission Date: 20120403
  Serious: No
  Sender: FDA-Public Use
  Company Number: US-PFIZER INC-2011314675

PATIENT
  Sex: Male
  Weight: 74.83 kg

DRUGS (5)
  1. SOMA [Concomitant]
     Indication: BACK PAIN
     Dosage: UNK, 4X/DAY
  2. CHANTIX [Suspect]
     Indication: SMOKING CESSATION THERAPY
     Dosage: 0.5 MG, DAILY
     Route: 048
     Dates: start: 20111001, end: 20110101
  3. BACLOFEN [Concomitant]
     Indication: RELAXATION THERAPY
     Dosage: UNK, AS NEEDED
  4. CHANTIX [Suspect]
     Dosage: UNK
     Route: 048
     Dates: start: 20110101, end: 20110101
  5. FLEXERIL [Concomitant]
     Indication: BACK PAIN
     Dosage: UNK

REACTIONS (1)
  - APHONIA [None]
